FAERS Safety Report 7813733-1 (Version None)
Quarter: 2011Q4

REPORT INFORMATION
  Report Type: 
  Country: None (occurrence: None)
  Receive Date: 20111014
  Receipt Date: 20111004
  Transmission Date: 20120403
  Serious: Yes (Hospitalization, Other)
  Sender: FDA-Public Use
  Company Number: GB-RANBAXY-2011R1-48844

PATIENT

DRUGS (4)
  1. SERTRALINE HYDROCHLORIDE [Suspect]
     Indication: MENTAL DISORDER
     Route: 048
  2. GABAPENTIN [Suspect]
     Indication: PRODUCT USED FOR UNKNOWN INDICATION
     Route: 065
  3. AMITRIPTYLINE HCL [Suspect]
     Indication: MENTAL DISORDER
     Dosage: UNK
     Route: 065
  4. FOLIC ACID [Concomitant]
     Indication: PROPHYLAXIS OF NEURAL TUBE DEFECT
     Route: 065

REACTIONS (4)
  - MATERNAL EXPOSURE DURING PREGNANCY [None]
  - WITHDRAWAL SYNDROME [None]
  - PREGNANCY [None]
  - MATERNAL EXPOSURE BEFORE PREGNANCY [None]
